FAERS Safety Report 6905258-2 (Version None)
Quarter: 2010Q3

REPORT INFORMATION
  Report Type: 
  Country: None (occurrence: None)
  Receive Date: 20100804
  Receipt Date: 20100730
  Transmission Date: 20110219
  Serious: Yes (Hospitalization, Other)
  Sender: FDA-Public Use
  Company Number: BR-SANOFI-AVENTIS-2010SA045276

PATIENT
  Age: 30 Year
  Sex: Male
  Weight: 62 kg

DRUGS (12)
  1. LANTUS [Suspect]
     Route: 058
     Dates: start: 20091101
  2. AUTOPEN 24 [Suspect]
  3. GABAPENTIN [Concomitant]
     Route: 048
     Dates: start: 20091101
  4. SUPRADYN /ARG/ [Concomitant]
     Route: 048
  5. RENAGEL [Concomitant]
     Route: 048
     Dates: start: 20091101
  6. EFORTIL [Concomitant]
     Indication: BLOOD PRESSURE
     Route: 048
  7. DIMETICONE [Concomitant]
     Route: 048
  8. DRAMIN [Concomitant]
     Indication: NAUSEA
     Route: 048
  9. ALL OTHER THERAPEUTIC PRODUCTS [Concomitant]
     Indication: LIVER DISORDER
     Route: 048
  10. NOVORAPID [Concomitant]
     Route: 058
  11. EXODUS [Concomitant]
     Indication: DEPRESSION
  12. CLONAZEPAM [Concomitant]
     Indication: DEPRESSION

REACTIONS (3)
  - BLOOD PRESSURE DECREASED [None]
  - HYPOGLYCAEMIA [None]
  - THROMBOSIS [None]
